FAERS Safety Report 20206048 (Version 1)
Quarter: 2021Q4

REPORT INFORMATION
  Report Type: Spontaneous
  Country: US (occurrence: US)
  Receive Date: 20211220
  Receipt Date: 20211220
  Transmission Date: 20220303
  Serious: No
  Sender: FDA-Public Use
  Company Number: US-drreddys-SPO/USA/21/0144763

PATIENT
  Age: 15 Year
  Sex: Male

DRUGS (1)
  1. ACCUTANE [Suspect]
     Active Substance: ISOTRETINOIN
     Indication: Product used for unknown indication
     Dosage: RMA ISSUE DATE?09 SEPTEMBER 2021 12:00:00 AM, 06 OCTOBER 2021 12:00:00 AM, 05 NOVEMBER 2021 12:00:00
     Dates: start: 20210909, end: 20211209

REACTIONS (1)
  - Adverse drug reaction [Unknown]
